FAERS Safety Report 9840885 (Version 1)
Quarter: 2013Q4

REPORT INFORMATION
  Report Type: Spontaneous
  Country: US (occurrence: None)
  Receive Date: 20131219
  Receipt Date: 20131219
  Transmission Date: 20140711
  Serious: Yes (Disabling)
  Sender: FDA-Public Use
  Company Number: 163-20785-12092373

PATIENT
  Age: 88 Year
  Sex: Female

DRUGS (4)
  1. THALOMID [Suspect]
     Indication: PLASMA CELL MYELOMA
     Route: 048
     Dates: start: 20120619
  2. DECADRON (DEXAMETHASONE) [Concomitant]
  3. TRAMADOL [Concomitant]
  4. LORTAB (VICODIN) [Concomitant]

REACTIONS (1)
  - Flank pain [None]
